FAERS Safety Report 13383686 (Version 2)
Quarter: 2018Q2

REPORT INFORMATION
  Report Type: Spontaneous
  Country: US (occurrence: US)
  Receive Date: 20170329
  Receipt Date: 20180423
  Transmission Date: 20180711
  Serious: Yes (Hospitalization)
  Sender: FDA-Public Use
  Company Number: PHHY2017US043146

PATIENT
  Age: 69 Year
  Sex: Male

DRUGS (11)
  1. AMIODARONE [Interacting]
     Active Substance: AMIODARONE
     Indication: CARDIOVASCULAR DISORDER
     Route: 065
  2. LORAZEPAM. [Interacting]
     Active Substance: LORAZEPAM
     Indication: BIPOLAR DISORDER
     Dosage: UNK
     Route: 048
  3. POTASSIUM [Interacting]
     Active Substance: POTASSIUM
     Indication: CARDIOVASCULAR DISORDER
     Route: 065
  4. DIGOXIN. [Suspect]
     Active Substance: DIGOXIN
     Indication: CARDIOVASCULAR DISORDER
     Route: 065
  5. FLUOXETINE [Interacting]
     Active Substance: FLUOXETINE HYDROCHLORIDE
     Indication: BIPOLAR DISORDER
     Route: 065
  6. ROPINIROLE. [Interacting]
     Active Substance: ROPINIROLE
     Indication: BIPOLAR DISORDER
     Route: 065
  7. CLOPIDOGREL [Interacting]
     Active Substance: CLOPIDOGREL BISULFATE
     Indication: CARDIOVASCULAR DISORDER
     Route: 065
  8. DIPHENHYDRAMINE. [Interacting]
     Active Substance: DIPHENHYDRAMINE
     Indication: INSOMNIA
     Route: 065
  9. CARVEDILOL. [Interacting]
     Active Substance: CARVEDILOL
     Indication: CARDIOVASCULAR DISORDER
     Route: 065
  10. CIPROFLOXACIN. [Interacting]
     Active Substance: CIPROFLOXACIN
     Indication: URINARY TRACT INFECTION
     Route: 065
  11. FLUPHENAZINE [Interacting]
     Active Substance: FLUPHENAZINE
     Indication: BIPOLAR DISORDER
     Route: 065

REACTIONS (3)
  - Torsade de pointes [Recovered/Resolved]
  - Delirium [Recovered/Resolved]
  - Drug interaction [Unknown]
